FAERS Safety Report 6248758-3 (Version None)
Quarter: 2009Q2

REPORT INFORMATION
  Report Type: 
  Country: None (occurrence: None)
  Receive Date: 20090629
  Receipt Date: 20090623
  Transmission Date: 20091009
  Serious: Yes (Other)
  Sender: FDA-Public Use
  Company Number: PHEH2009US04328

PATIENT
  Sex: Female
  Weight: 61.224 kg

DRUGS (3)
  1. TEKTURNA [Suspect]
     Indication: HYPERTENSION
     Dosage: 150 MG, QD
     Route: 048
     Dates: start: 20090416, end: 20090416
  2. POTASSIUM CHLORIDE [Concomitant]
     Dosage: UNK
     Dates: start: 20090201
  3. VITAMINS [Concomitant]
     Dosage: 1 DAILY

REACTIONS (5)
  - DIZZINESS [None]
  - EXTRASYSTOLES [None]
  - HYPERHIDROSIS [None]
  - PALPITATIONS [None]
  - TACHYCARDIA [None]
